FAERS Safety Report 12514269 (Version 1)
Quarter: 2016Q2

REPORT INFORMATION
  Report Type: Spontaneous
  Country: US (occurrence: None)
  Receive Date: 20160629
  Receipt Date: 20160629
  Transmission Date: 20160815
  Serious: No
  Sender: FDA-Public Use
  Company Number: None

PATIENT
  Age: 72 Year
  Sex: Female

DRUGS (2)
  1. EXJADE [Suspect]
     Active Substance: DEFERASIROX
     Dosage: 125 MG TAB FOR SUSP 1 QD WITH 2-500MG PO
     Route: 048
  2. EXJADE [Suspect]
     Active Substance: DEFERASIROX
     Indication: MYELODYSPLASTIC SYNDROME
     Dosage: 500 MG TAB FOR SUSP 2 Q1D WITH 125 MG PO
     Route: 048
     Dates: start: 20160206

REACTIONS (1)
  - Dyspnoea [None]

NARRATIVE: CASE EVENT DATE: 2016
